FAERS Safety Report 8171664-4 (Version None)
Quarter: 2012Q1

REPORT INFORMATION
  Report Type: 
  Country: None (occurrence: None)
  Receive Date: 20120228
  Receipt Date: 20120223
  Transmission Date: 20120608
  Serious: Yes (Other)
  Sender: FDA-Public Use
  Company Number: DK-JNJFOC-20120212932

PATIENT
  Sex: Female

DRUGS (6)
  1. REMICADE [Suspect]
     Indication: RHEUMATOID ARTHRITIS
     Route: 042
     Dates: start: 20021126
  2. PREDNISOLONE [Concomitant]
     Dates: start: 20051213
  3. METHOTREXATE [Suspect]
     Dates: start: 20070313, end: 20070521
  4. METHOTREXATE [Suspect]
     Indication: RHEUMATOID ARTHRITIS
     Dates: start: 20031014, end: 20060608
  5. REMICADE [Suspect]
     Route: 042
     Dates: start: 20071108
  6. METHOTREXATE [Suspect]
     Dates: start: 20070604, end: 20100708

REACTIONS (2)
  - LUNG ADENOCARCINOMA [None]
  - THYROID CANCER [None]
